FAERS Safety Report 13299536 (Version 3)
Quarter: 2017Q2

REPORT INFORMATION
  Report Type: Report from Study
  Country: US (occurrence: US)
  Receive Date: 20170306
  Receipt Date: 20170410
  Transmission Date: 20170830
  Serious: Yes (Other)
  Sender: FDA-Public Use
  Company Number: US-009507513-1702USA009174

PATIENT
  Age: 57 Year
  Sex: Male

DRUGS (3)
  1. PEMBROLIZUMAB. [Suspect]
     Active Substance: PEMBROLIZUMAB
     Indication: NON-SMALL CELL LUNG CANCER
     Dosage: (STRENGHT: 50 MG) 200 MG, EVERY 3 WEEKS
     Route: 041
     Dates: start: 20161201, end: 20161201
  2. PEMBROLIZUMAB. [Suspect]
     Active Substance: PEMBROLIZUMAB
     Dosage: (STRENGHT: 50 MG) 200 MG, EVERY 3 WEEKS
     Route: 041
     Dates: start: 20170223, end: 20170223
  3. PEMBROLIZUMAB. [Suspect]
     Active Substance: PEMBROLIZUMAB
     Dosage: (STRENGHT: 50 MG) 200 MG, EVERY 3 WEEKS
     Route: 041
     Dates: start: 20170316

REACTIONS (5)
  - Bone cancer [Not Recovered/Not Resolved]
  - Blood phosphorus decreased [Unknown]
  - Blood calcium decreased [Unknown]
  - Drug ineffective [Unknown]
  - Dyspnoea [Not Recovered/Not Resolved]

NARRATIVE: CASE EVENT DATE: 20170210
